FAERS Safety Report 23985762 (Version 7)
Quarter: 2024Q4

REPORT INFORMATION
  Report Type: Report from Study
  Country: CN (occurrence: CN)
  Receive Date: 20240618
  Receipt Date: 20241101
  Transmission Date: 20250115
  Serious: Yes (Life-Threatening, Hospitalization, Other)
  Sender: BAXTER
  Company Number: CN-BAXTER-2024BAX019546

PATIENT
  Age: 62 Year
  Sex: Female
  Weight: 59.5 kg

DRUGS (10)
  1. CYCLOPHOSPHAMIDE [Suspect]
     Active Substance: CYCLOPHOSPHAMIDE
     Indication: Diffuse large B-cell lymphoma stage IV
     Dosage: 1222.5 MG, EVERY 3 WEEKS, ONGOING
     Route: 042
     Dates: start: 20240519
  2. EPCORITAMAB [Suspect]
     Active Substance: EPCORITAMAB
     Indication: Diffuse large B-cell lymphoma stage IV
     Dosage: 0.16 MG PRIMING DOSE; C1, D1, TOTAL
     Route: 058
     Dates: start: 20240519, end: 20240519
  3. EPCORITAMAB [Suspect]
     Active Substance: EPCORITAMAB
     Dosage: 0.16 MG REPRIMING DOSE, TOTAL
     Route: 058
     Dates: start: 20240612
  4. DOXORUBICIN [Suspect]
     Active Substance: DOXORUBICIN
     Indication: Diffuse large B-cell lymphoma stage IV
     Dosage: 81.5 MG, EVERY 3 WEEKS, ONGOING
     Route: 042
     Dates: start: 20240519
  5. PREDNISONE [Suspect]
     Active Substance: PREDNISONE
     Indication: Diffuse large B-cell lymphoma stage IV
     Dosage: 100 MG DAILY C1-6, DAY 1-5, EVERY 1 DAYS,ONGOING
     Route: 048
     Dates: start: 20240518
  6. RITUXIMAB [Suspect]
     Active Substance: RITUXIMAB
     Indication: Diffuse large B-cell lymphoma stage IV
     Dosage: 611.3 MG, EVERY 3 WEEKS,ONGOING
     Route: 042
     Dates: start: 20240518
  7. VINCRISTINE [Suspect]
     Active Substance: VINCRISTINE
     Indication: Diffuse large B-cell lymphoma stage IV
     Dosage: 2 MG, EVERY 3 WEEKS, ONGOING
     Route: 042
     Dates: start: 20240519
  8. VALSARTAN [Concomitant]
     Active Substance: VALSARTAN
     Indication: Hypertension
     Dosage: 80 MG, EVERY 1 DAYS, START DATE: 2014
     Route: 065
  9. SODIUM BICARBONATE [Concomitant]
     Active Substance: SODIUM BICARBONATE
     Indication: Prophylaxis
     Dosage: 12.5 G, EVERY 1 DAYS
     Route: 065
     Dates: start: 20240516, end: 20240519
  10. FUROSEMIDE [Concomitant]
     Active Substance: FUROSEMIDE
     Indication: Diuretic therapy
     Dosage: 20 MG, EVERY 1 DAYS
     Route: 065
     Dates: start: 20240517, end: 20240519

REACTIONS (5)
  - Hypokalaemia [Recovered/Resolved]
  - Tumour lysis syndrome [Recovered/Resolved]
  - Febrile neutropenia [Recovered/Resolved]
  - Thrombocytopenia [Recovered/Resolved]
  - Pulmonary oedema [Recovered/Resolved]

NARRATIVE: CASE EVENT DATE: 20240520
